FAERS Safety Report 10666145 (Version 2)
Quarter: 2018Q3

REPORT INFORMATION
  Report Type: Spontaneous
  Country: US (occurrence: US)
  Receive Date: 20141219
  Receipt Date: 20180926
  Transmission Date: 20181010
  Serious: Yes (Death, Hospitalization)
  Sender: FDA-Public Use
  Company Number: US-TARO-2014TAR00617

PATIENT
  Age: 96 Year
  Sex: Female
  Weight: 40.82 kg

DRUGS (2)
  1. WARFARIN SODIUM TABLETS USP 2.5MG [Suspect]
     Active Substance: WARFARIN SODIUM
     Indication: ATRIAL FIBRILLATION
     Dosage: 2.5 MG, 2X/WEEK
     Route: 048
     Dates: start: 2005, end: 20140826
  2. WARFARIN SODIUM TABLETS USP 2MG [Suspect]
     Active Substance: WARFARIN SODIUM
     Indication: ATRIAL FIBRILLATION
     Dosage: 2 MG, 6X/WEEK
     Route: 048
     Dates: start: 2005, end: 20140826

REACTIONS (3)
  - Cerebrovascular accident [Fatal]
  - Withdrawal syndrome [Fatal]
  - Atrial fibrillation [Recovered/Resolved]

NARRATIVE: CASE EVENT DATE: 20140826
